FAERS Safety Report 20071483 (Version 2)
Quarter: 2021Q4

REPORT INFORMATION
  Report Type: Report from Study
  Country: US (occurrence: US)
  Receive Date: 20211115
  Receipt Date: 20211117
  Transmission Date: 20220303
  Serious: No
  Sender: FDA-Public Use
  Company Number: US-NOVARTISTESTPH-NVSC2021US260358

PATIENT
  Sex: Female

DRUGS (1)
  1. COSENTYX [Suspect]
     Active Substance: SECUKINUMAB
     Indication: Psoriasis
     Dosage: 300 MG, EVERY WEEK X 5 WEEK THEN EVERY 4 WEEKS
     Route: 058
     Dates: start: 20211027

REACTIONS (4)
  - Fall [Unknown]
  - Joint injury [Unknown]
  - Injection site pain [Unknown]
  - Injection site bruising [Unknown]
